FAERS Safety Report 9888179 (Version 1)
Quarter: 2014Q1

REPORT INFORMATION
  Report Type: Spontaneous
  Country: US (occurrence: None)
  Receive Date: 20140210
  Receipt Date: 20140210
  Transmission Date: 20141002
  Serious: Yes (Other)
  Sender: FDA-Public Use
  Company Number: None

PATIENT
  Age: 39 Year
  Sex: Female
  Weight: 81.65 kg

DRUGS (1)
  1. GABAPENTIN [Suspect]
     Dosage: TAKEN BY MOUTH
     Route: 048

REACTIONS (5)
  - Anger [None]
  - Aggression [None]
  - Depression [None]
  - Suicidal ideation [None]
  - Emotional disorder [None]
